FAERS Safety Report 25998810 (Version 1)
Quarter: 2025Q4

REPORT INFORMATION
  Report Type: Report from Study
  Country: US (occurrence: US)
  Receive Date: 20251105
  Receipt Date: 20251105
  Transmission Date: 20260119
  Serious: Yes (Hospitalization)
  Sender: UPSHER SMITH LABORATORIES
  Company Number: US-UPSHER-SMITH LABORATORIES, LLC-20251001404

PATIENT
  Age: 2 Year

DRUGS (1)
  1. VIGADRONE [Suspect]
     Active Substance: VIGABATRIN
     Indication: Lennox-Gastaut syndrome
     Dosage: 750 MG, BID (15 ML)
     Route: 048
     Dates: start: 20231025

REACTIONS (1)
  - Respiratory disorder [Not Recovered/Not Resolved]

NARRATIVE: CASE EVENT DATE: 20251019
